FAERS Safety Report 10416779 (Version 1)
Quarter: 2014Q3

REPORT INFORMATION
  Report Type: Spontaneous
  Country: US (occurrence: None)
  Receive Date: 20140825
  Receipt Date: 20140825
  Transmission Date: 20150326
  Serious: Yes (Other)
  Sender: FDA-Public Use
  Company Number: NXG-14-012

PATIENT

DRUGS (1)
  1. ASCOMP WITH CODEINE [Suspect]
     Active Substance: ASPIRIN\BUTALBITAL\CAFFEINE\CODEINE PHOSPHATE
     Dates: start: 201406, end: 201407

REACTIONS (2)
  - Abdominal pain upper [None]
  - Drug ineffective [None]
